FAERS Safety Report 7702089-0 (Version None)
Quarter: 2011Q3

REPORT INFORMATION
  Report Type: 
  Country: None (occurrence: None)
  Receive Date: 20110822
  Receipt Date: 20110812
  Transmission Date: 20111222
  Serious: Yes (Hospitalization)
  Sender: FDA-Public Use
  Company Number: US-ASTRAZENECA-2011SE41274

PATIENT
  Age: 60 Year
  Sex: Female

DRUGS (3)
  1. NEXIUM [Suspect]
     Route: 048
  2. CRESTOR [Suspect]
     Route: 048
  3. PULMICORT FLEXHALER [Suspect]
     Route: 055

REACTIONS (2)
  - DYSPNOEA EXERTIONAL [None]
  - MALAISE [None]
